FAERS Safety Report 13595132 (Version 1)
Quarter: 2017Q2

REPORT INFORMATION
  Report Type: Spontaneous
  Country: GB (occurrence: GB)
  Receive Date: 20170531
  Receipt Date: 20170531
  Transmission Date: 20170830
  Serious: Yes (Hospitalization)
  Sender: FDA-Public Use
  Company Number: GB-TORRENT-00015314

PATIENT
  Age: 78 Year
  Sex: Female

DRUGS (8)
  1. BISOPROLOL [Concomitant]
     Active Substance: BISOPROLOL
  2. WARFARIN [Suspect]
     Active Substance: WARFARIN
  3. FUROSEMIDE. [Concomitant]
     Active Substance: FUROSEMIDE
  4. CLOPIDOGREL [Suspect]
     Active Substance: CLOPIDOGREL BISULFATE
  5. PERINDOPRIL [Concomitant]
     Active Substance: PERINDOPRIL
  6. LANSOPRAZOLE. [Concomitant]
     Active Substance: LANSOPRAZOLE
  7. PREDNISOLONE. [Concomitant]
     Active Substance: PREDNISOLONE
  8. ROSUVASTATIN. [Concomitant]
     Active Substance: ROSUVASTATIN

REACTIONS (1)
  - Abdominal wall haematoma [Recovered/Resolved]
